FAERS Safety Report 6223312-8 (Version None)
Quarter: 2009Q2

REPORT INFORMATION
  Report Type: 
  Country: None (occurrence: None)
  Receive Date: 20090609
  Receipt Date: 20090605
  Transmission Date: 20091009
  Serious: Yes (Hospitalization, Other)
  Sender: FDA-Public Use
  Company Number: IT-WYE-G03232109

PATIENT
  Age: 7 Year
  Sex: Female

DRUGS (6)
  1. PIPERACILLIN AND TAZOBACTAM [Suspect]
     Indication: BRONCHOPNEUMONIA
     Dosage: 5.4 G 1X PER 1 DAY INTRAVENOUS
     Route: 042
     Dates: start: 20090227, end: 20090227
  2. PIPERACILLIN AND TAZOBACTAM [Suspect]
     Indication: PYREXIA
     Dosage: 5.4 G 1X PER 1 DAY INTRAVENOUS
     Route: 042
     Dates: start: 20090227, end: 20090227
  3. CLARITHROMYCIN [Concomitant]
  4. BACTRIM [Concomitant]
  5. CYCLOSPORINE [Concomitant]
  6. VALGANCICLOVIR HCL [Concomitant]

REACTIONS (3)
  - ANGIOEDEMA [None]
  - ERYTHEMA [None]
  - RESPIRATORY FAILURE [None]
